FAERS Safety Report 18725496 (Version 3)
Quarter: 2021Q1

REPORT INFORMATION
  Report Type: Report from Study
  Country: FR (occurrence: FR)
  Receive Date: 20210111
  Receipt Date: 20210301
  Transmission Date: 20210419
  Serious: Yes (Other)
  Sender: FDA-Public Use
  Company Number: FR-DSJP-DSE-2021-100171

PATIENT
  Age: 76 Year
  Sex: Female
  Weight: 62 kg

DRUGS (6)
  1. TRASTUZUMAB DERUXTECAN. [Suspect]
     Active Substance: TRASTUZUMAB DERUXTECAN
     Dosage: 350 MG, CYCLIC, (ONCE PER 21 DAY CYCLE)
     Route: 042
  2. TRASTUZUMAB DERUXTECAN. [Suspect]
     Active Substance: TRASTUZUMAB DERUXTECAN
     Dosage: 350 MG, CYCLIC, (ONCE PER 21 DAY CYCLE)
     Route: 042
     Dates: start: 20210121, end: 20210121
  3. TRASTUZUMAB DERUXTECAN. [Suspect]
     Active Substance: TRASTUZUMAB DERUXTECAN
     Indication: HER2 POSITIVE BREAST CANCER
     Dosage: 350 MG, CYCLIC, (ONCE PER 21 DAY CYCLE)
     Route: 042
     Dates: start: 20200310, end: 20200310
  4. FUROSEMIDE. [Concomitant]
     Active Substance: FUROSEMIDE
     Indication: HYPERTENSION
     Dosage: UNK
     Route: 048
  5. TRASTUZUMAB DERUXTECAN. [Suspect]
     Active Substance: TRASTUZUMAB DERUXTECAN
     Dosage: 350 MG, CYCLIC, (ONCE PER 21 DAY CYCLE)
     Route: 042
     Dates: start: 20201210, end: 20201210
  6. SIMVASTATINE [Concomitant]
     Active Substance: SIMVASTATIN
     Indication: DYSLIPIDAEMIA
     Dosage: UNK
     Route: 048

REACTIONS (1)
  - Pneumonia [Not Recovered/Not Resolved]

NARRATIVE: CASE EVENT DATE: 20201117
